FAERS Safety Report 10177430 (Version 2)
Quarter: 2014Q2

REPORT INFORMATION
  Report Type: Report from Study
  Country: BG (occurrence: BG)
  Receive Date: 20140516
  Receipt Date: 20140516
  Transmission Date: 20141212
  Serious: Yes (Hospitalization)
  Sender: FDA-Public Use
  Company Number: BG-CELGENEUS-022-10004-13064319

PATIENT
  Age: 59 Year
  Sex: Male
  Weight: 65.5 kg

DRUGS (2)
  1. CC-10004 [Suspect]
     Indication: PSORIATIC ARTHROPATHY
     Dosage: 60 MILLIGRAM
     Route: 048
  2. NO-SPA [Concomitant]
     Indication: FUNCTIONAL GASTROINTESTINAL DISORDER
     Dosage: 1 MILLILITER
     Route: 030
     Dates: start: 20130603, end: 20130606

REACTIONS (1)
  - Irritable bowel syndrome [Recovered/Resolved]
